FAERS Safety Report 10181624 (Version 1)
Quarter: 2014Q2

REPORT INFORMATION
  Report Type: Report from Study
  Country: TN (occurrence: TN)
  Receive Date: 20140519
  Receipt Date: 20140519
  Transmission Date: 20141212
  Serious: Yes (Other)
  Sender: FDA-Public Use
  Company Number: TN-INCYTE CORPORATION-2014IN001335

PATIENT
  Age: 62 Year
  Sex: Male
  Weight: 98 kg

DRUGS (4)
  1. INC424 [Suspect]
     Indication: MYELOFIBROSIS
     Dosage: 20 MG, BID
     Route: 048
     Dates: start: 20130703, end: 20140422
  2. SALAC//SALICYLIC ACID [Concomitant]
     Indication: CARDIOVASCULAR EVENT PROPHYLAXIS
     Dosage: 1 DF, QD
     Dates: start: 20020118
  3. COLCHICIN [Concomitant]
     Indication: CHONDROCALCINOSIS
     Dosage: 1 CP PER DAY
     Dates: start: 20130502
  4. NIFLUMIC ACID [Concomitant]
     Indication: CHONDROCALCINOSIS
     Dosage: 1 SUPP, BID
     Dates: start: 20130502

REACTIONS (1)
  - Atrioventricular block [Not Recovered/Not Resolved]
